FAERS Safety Report 8816822 (Version 2)
Quarter: 2013Q1

REPORT INFORMATION
  Report Type: Spontaneous
  Country: JP (occurrence: None)
  Receive Date: 20121001
  Receipt Date: 20121231
  Transmission Date: 20140127
  Serious: Yes (Hospitalization)
  Sender: FDA-Public Use
  Company Number: DSA_59829_2012

PATIENT
  Age: 43 Year
  Sex: Female

DRUGS (6)
  1. FLUOROURACIL (FLUOROURACIL) [Suspect]
     Indication: COLON CANCER
  2. FLUOROURACIL (FLUOROURACIL) [Suspect]
     Indication: METASTASES TO LIVER
  3. OXALIPLATIN [Suspect]
     Indication: COLON CANCER
  4. OXALIPLATIN [Suspect]
     Indication: METASTASES TO LIVER
  5. LEUCOVORIN [Suspect]
     Indication: COLON CANCER
  6. LEUCOVORIN [Suspect]
     Indication: METASTASES TO LIVER

REACTIONS (6)
  - Posterior reversible encephalopathy syndrome [None]
  - Status epilepticus [None]
  - Grand mal convulsion [None]
  - Colorectal cancer metastatic [None]
  - Malignant neoplasm progression [None]
  - General physical health deterioration [None]
